FAERS Safety Report 16043720 (Version 4)
Quarter: 2019Q3

REPORT INFORMATION
  Report Type: Spontaneous
  Country: US (occurrence: US)
  Receive Date: 20190306
  Receipt Date: 20190819
  Transmission Date: 20191004
  Serious: Yes (Hospitalization, Other)
  Sender: FDA-Public Use
  Company Number: US-ASTRAZENECA-2018SF33458

PATIENT
  Age: 719 Month
  Sex: Female
  Weight: 108 kg

DRUGS (32)
  1. BUPROPION. [Concomitant]
     Active Substance: BUPROPION
  2. LORAZEPAM. [Concomitant]
     Active Substance: LORAZEPAM
  3. ESTRADIOL. [Concomitant]
     Active Substance: ESTRADIOL
  4. BUDEPRION [Concomitant]
     Active Substance: BUPROPION HYDROCHLORIDE
  5. PRILOSEC OTC [Suspect]
     Active Substance: OMEPRAZOLE MAGNESIUM
     Route: 048
     Dates: start: 201007, end: 201301
  6. AMBIEN [Concomitant]
     Active Substance: ZOLPIDEM TARTRATE
  7. PROTONIX [Suspect]
     Active Substance: PANTOPRAZOLE SODIUM
     Indication: GASTROOESOPHAGEAL REFLUX DISEASE
     Route: 065
     Dates: start: 2010, end: 2013
  8. PROTONIX [Suspect]
     Active Substance: PANTOPRAZOLE SODIUM
     Indication: GASTROOESOPHAGEAL REFLUX DISEASE
     Dosage: GENERIC
     Route: 065
     Dates: start: 20000717
  9. PROTONIX [Suspect]
     Active Substance: PANTOPRAZOLE SODIUM
     Route: 065
     Dates: start: 201007, end: 201301
  10. ONDANSETRON [Concomitant]
     Active Substance: ONDANSETRON
  11. PROMETHAZINE [Concomitant]
     Active Substance: PROMETHAZINE HYDROCHLORIDE
  12. PROTONIX [Suspect]
     Active Substance: PANTOPRAZOLE SODIUM
     Route: 065
     Dates: start: 20100719, end: 20100719
  13. DIOVAN [Concomitant]
     Active Substance: VALSARTAN
  14. ESTRADIOL. [Concomitant]
     Active Substance: ESTRADIOL
  15. LEVOTHYROXINE. [Concomitant]
     Active Substance: LEVOTHYROXINE
  16. CARVEDILOL. [Concomitant]
     Active Substance: CARVEDILOL
  17. PROTONIX [Suspect]
     Active Substance: PANTOPRAZOLE SODIUM
     Indication: GASTROOESOPHAGEAL REFLUX DISEASE
     Route: 065
     Dates: start: 20100717, end: 20100724
  18. AZITHROMYCIN ANHYDROUS. [Concomitant]
     Active Substance: AZITHROMYCIN ANHYDROUS
  19. PREDNISONE. [Concomitant]
     Active Substance: PREDNISONE
  20. TRAZODONE [Concomitant]
     Active Substance: TRAZODONE HYDROCHLORIDE
  21. ASPIRIN. [Concomitant]
     Active Substance: ASPIRIN
  22. SERTRALINE [Concomitant]
     Active Substance: SERTRALINE HYDROCHLORIDE
  23. AMITRIPTYLINE [Concomitant]
     Active Substance: AMITRIPTYLINE
  24. RANITIDINE. [Concomitant]
     Active Substance: RANITIDINE
  25. PRILOSEC [Suspect]
     Active Substance: OMEPRAZOLE MAGNESIUM
     Indication: GASTROOESOPHAGEAL REFLUX DISEASE
     Route: 048
     Dates: start: 201007, end: 201301
  26. PREVACID 24 HR [Suspect]
     Active Substance: LANSOPRAZOLE
     Indication: GASTROOESOPHAGEAL REFLUX DISEASE
     Route: 065
  27. PRILOSEC [Suspect]
     Active Substance: OMEPRAZOLE MAGNESIUM
     Indication: GASTROOESOPHAGEAL REFLUX DISEASE
     Route: 048
     Dates: start: 20130129, end: 20130129
  28. PROTONIX [Suspect]
     Active Substance: PANTOPRAZOLE SODIUM
     Indication: GASTROOESOPHAGEAL REFLUX DISEASE
     Route: 048
     Dates: start: 20100719
  29. FLUTICASONE. [Concomitant]
     Active Substance: FLUTICASONE
  30. LORAZEPAM. [Concomitant]
     Active Substance: LORAZEPAM
  31. ZOLPIDEM TARTRATE. [Concomitant]
     Active Substance: ZOLPIDEM TARTRATE
  32. SUCRALFATE. [Concomitant]
     Active Substance: SUCRALFATE

REACTIONS (6)
  - Renal injury [Unknown]
  - Chronic kidney disease [Not Recovered/Not Resolved]
  - Acute kidney injury [Not Recovered/Not Resolved]
  - Tubulointerstitial nephritis [Unknown]
  - Renal failure [Unknown]
  - Nephrogenic anaemia [Unknown]

NARRATIVE: CASE EVENT DATE: 201007
